FAERS Safety Report 9843961 (Version 1)
Quarter: 2013Q4

REPORT INFORMATION
  Report Type: Spontaneous
  Country: US (occurrence: None)
  Receive Date: 20131223
  Receipt Date: 20131223
  Transmission Date: 20140711
  Serious: No
  Sender: FDA-Public Use
  Company Number: 1000049986

PATIENT
  Age: 78 Year
  Sex: Female

DRUGS (11)
  1. LINZESS (LINACLOTIDE) (145 MICROGRAM, CAPSULES) [Suspect]
     Indication: CONSTIPATION
     Dosage: 145 MCG (145 MCG, 1 IN 1 D), ORAL
     Route: 048
     Dates: start: 2013, end: 2013
  2. LINZESS (LINACLOTIDE) (145 MICROGRAM, CAPSULES) [Suspect]
     Indication: CONSTIPATION
     Dosage: 145 MCG (145 MCG, 1 IN1 D), ORAL
     Route: 048
     Dates: start: 201210
  3. PROZAC (FLUOXETINE HYDROCHLORIDE) (FLUOXETINE HYDROCHLORIDE) [Concomitant]
  4. TRAZODONE (TRAZODONE) (TRAZODONE) [Concomitant]
  5. AMLODIPINE (AMLODIPINE) (AMLODIINE) [Concomitant]
  6. IRBESARTAN (IRBESARTAN) (IRBESARTAN) [Concomitant]
  7. XANAX (ALPRAZOLAM) (ALPRAZOLAM) [Concomitant]
  8. CLONIDINE (CLONIDINE) (CLONIDINE) [Concomitant]
  9. COLACE [Concomitant]
  10. SYNTHROID (LEVOTHYROXINE SODIUM) (LEVOTHYROXINE SODIUM) [Concomitant]
  11. MIRALAX (POLYETHYLENE GLYCOL) (POLYETHYLENE GLYCOL) [Concomitant]

REACTIONS (2)
  - Abdominal discomfort [None]
  - Headache [None]
